FAERS Safety Report 14496619 (Version 5)
Quarter: 2019Q1

REPORT INFORMATION
  Report Type: Spontaneous
  Country: AT (occurrence: AT)
  Receive Date: 20180207
  Receipt Date: 20190208
  Transmission Date: 20190417
  Serious: Yes (Other)
  Sender: FDA-Public Use
  Company Number: AT-UCBSA-2018003622

PATIENT
  Age: 38 Year
  Sex: Male

DRUGS (14)
  1. LEPONEX [Suspect]
     Active Substance: CLOZAPINE
     Dosage: 25-125 MG, DOSE INCREASING
     Route: 048
     Dates: start: 20170109, end: 20170114
  2. XEPLION [Suspect]
     Active Substance: PALIPERIDONE PALMITATE
     Dosage: 100 MG, UNK ( 1 IN 28 DAYS)
     Route: 030
     Dates: start: 20170112
  3. LEPONEX [Suspect]
     Active Substance: CLOZAPINE
     Dosage: 25-100 MG
  4. AKINETON [Suspect]
     Active Substance: BIPERIDEN HYDROCHLORIDE
     Indication: PRODUCT USED FOR UNKNOWN INDICATION
     Dosage: 4 MG, UNK
     Route: 048
     Dates: start: 20161207, end: 20170124
  5. DEPAKINE [Suspect]
     Active Substance: VALPROATE SODIUM
     Indication: PRODUCT USED FOR UNKNOWN INDICATION
     Dosage: 100 MG, UNK
     Dates: start: 20161123, end: 20170112
  6. ABILIFY [Suspect]
     Active Substance: ARIPIPRAZOLE
     Dosage: 15 MG, UNK
     Route: 048
     Dates: start: 20161215, end: 20170119
  7. LEPONEX [Suspect]
     Active Substance: CLOZAPINE
     Indication: PRODUCT USED FOR UNKNOWN INDICATION
     Dosage: 150 MG, UNK
     Route: 048
  8. LEPONEX [Suspect]
     Active Substance: CLOZAPINE
     Dosage: 100-125 MG; 25 TO 125 MG WITHIN 5 DAYS.
     Route: 048
     Dates: start: 20170113, end: 20170124
  9. LEPONEX [Suspect]
     Active Substance: CLOZAPINE
     Dosage: 125 MG, UNK
     Route: 048
     Dates: start: 20170109, end: 20170114
  10. XYZALL [Suspect]
     Active Substance: LEVOCETIRIZINE DIHYDROCHLORIDE
     Indication: PRODUCT USED FOR UNKNOWN INDICATION
     Dosage: 5 MG, UNK
     Route: 048
     Dates: start: 20161219, end: 20170119
  11. ABILIFY [Suspect]
     Active Substance: ARIPIPRAZOLE
     Indication: PRODUCT USED FOR UNKNOWN INDICATION
     Dosage: 5 MG, UNK
     Route: 048
     Dates: start: 20170120, end: 20170121
  12. LEPONEX [Suspect]
     Active Substance: CLOZAPINE
     Dosage: 125-0 MG, DOSIS TAPERING
     Route: 048
     Dates: start: 20170130, end: 20170215
  13. XEPLION [Suspect]
     Active Substance: PALIPERIDONE PALMITATE
     Dosage: 150 MG, UNK (SINCE YEARS)
     Route: 030
  14. XEPLION [Suspect]
     Active Substance: PALIPERIDONE PALMITATE
     Indication: SCHIZOPHRENIA
     Dosage: 150 MG, MONTHLY (QM)
     Route: 030
     Dates: end: 20161212

REACTIONS (2)
  - Parkinsonism [Recovered/Resolved]
  - Sedation [Recovered/Resolved]

NARRATIVE: CASE EVENT DATE: 20170117
